FAERS Safety Report 6675167-5 (Version None)
Quarter: 2010Q2

REPORT INFORMATION
  Report Type: 
  Country: None (occurrence: None)
  Receive Date: 20100409
  Receipt Date: 20100331
  Transmission Date: 20101027
  Serious: Yes (Death)
  Sender: FDA-Public Use
  Company Number: GXKR2010GB03826

PATIENT
  Age: 50 Year
  Sex: Female
  Weight: 60 kg

DRUGS (3)
  1. FLUOROURACIL [Suspect]
     Indication: COLON CANCER
     Dosage: 4300 MG, UNK
     Route: 042
     Dates: start: 20071009, end: 20071011
  2. FOLINIC ACID [Concomitant]
     Indication: COLON CANCER
     Dosage: 175 MG, UNK
     Route: 042
     Dates: start: 20071009, end: 20071009
  3. OXALIPLATIN [Concomitant]
     Indication: COLON CANCER
     Dosage: 130 MG, UNK
     Route: 042
     Dates: start: 20071009, end: 20071009

REACTIONS (3)
  - ARTERIOSPASM CORONARY [None]
  - CARDIAC ARREST [None]
  - VENTRICULAR FIBRILLATION [None]
